FAERS Safety Report 4417717-5 (Version None)
Quarter: 2004Q3

REPORT INFORMATION
  Report Type: 
  Country: None (occurrence: None)
  Receive Date: 20040803
  Receipt Date: 20040723
  Transmission Date: 20050211
  Serious: No
  Sender: FDA-Public Use
  Company Number: 200534

PATIENT
  Age: 16 Year
  Sex: Female
  Weight: 34.9 kg

DRUGS (1)
  1. NUTROPIN AQ [Suspect]
     Indication: GROWTH RETARDATION
     Dosage: 3 MG, 6/WEEK, SUBCUTANEOUS
     Route: 058
     Dates: start: 20001228, end: 20030301

REACTIONS (3)
  - KYPHOSCOLIOSIS [None]
  - SICKLE CELL ANAEMIA WITH CRISIS [None]
  - TREATMENT NONCOMPLIANCE [None]
